FAERS Safety Report 11436535 (Version 1)
Quarter: 2015Q3

REPORT INFORMATION
  Report Type: Spontaneous
  Country: US (occurrence: US)
  Receive Date: 20150821
  Receipt Date: 20150821
  Transmission Date: 20151125
  Serious: No
  Sender: FDA-Public Use
  Company Number: US-ELI_LILLY_AND_COMPANY-US201403009803

PATIENT
  Sex: Male

DRUGS (2)
  1. ASPIRIN LOW DOSE [Concomitant]
     Active Substance: ASPIRIN
     Route: 065
  2. HUMULIN N [Suspect]
     Active Substance: INSULIN HUMAN
     Indication: TYPE 2 DIABETES MELLITUS
     Dosage: 32 IU, BID
     Route: 065
     Dates: start: 1994

REACTIONS (3)
  - Hypoaesthesia [Unknown]
  - Peripheral swelling [Unknown]
  - Blood glucose abnormal [Recovered/Resolved]
